FAERS Safety Report 11518205 (Version 3)
Quarter: 2016Q1

REPORT INFORMATION
  Report Type: Spontaneous
  Country: US (occurrence: US)
  Receive Date: 20150917
  Receipt Date: 20160120
  Transmission Date: 20160525
  Serious: Yes (Hospitalization, Other)
  Sender: FDA-Public Use
  Company Number: US-PFIZER INC-2015305424

PATIENT
  Age: 73 Year
  Sex: Female
  Weight: 69 kg

DRUGS (22)
  1. DOXEPIN HCL [Suspect]
     Active Substance: DOXEPIN HYDROCHLORIDE
     Indication: SLEEP DISORDER
     Dosage: 100 MG EVERY NIGHT
     Dates: start: 201310
  2. FLUOXETINE HCL [Concomitant]
     Active Substance: FLUOXETINE HYDROCHLORIDE
     Dosage: 20 MG, DAILY
     Route: 048
  3. PROGESTERONE. [Concomitant]
     Active Substance: PROGESTERONE
     Dosage: 100 MG, DAILY (BEDTIME)
     Route: 048
  4. VITAMIN B COMPLEX [Concomitant]
     Active Substance: CYANOCOBALAMIN\DEXPANTHENOL\NIACINAMIDE\PYRIDOXINE HYDROCHLORIDE\RIBOFLAVIN 5^-PHOSPHATE SODIUM\THIAMINE HYDROCHLORIDE\VITAMIN B COMPLEX
     Dosage: 1 DF, 2X/DAY
     Route: 048
  5. VITAMIN B12 [Concomitant]
     Active Substance: CYANOCOBALAMIN
     Dosage: 1000 UG, WEEKLY
     Route: 060
  6. FERREX [Concomitant]
     Dosage: 150 MG, DAILY
  7. VIVELLE-DOT [Concomitant]
     Active Substance: ESTRADIOL
     Dosage: 1 DF, 2X/WEEK (0.025 MG/24 HR)
     Route: 062
  8. DOXEPIN HCL [Suspect]
     Active Substance: DOXEPIN HYDROCHLORIDE
     Indication: INSOMNIA
     Dosage: 150 MG EVERY NIGHT
     Route: 048
     Dates: start: 201410
  9. FORTEO [Concomitant]
     Active Substance: TERIPARATIDE
     Dosage: 1 DF, DAILY (600 MCG/2.4 ML SOLUTION)
     Route: 030
  10. LORAZEPAM. [Concomitant]
     Active Substance: LORAZEPAM
     Dosage: 1 MG, AS NEEDED
     Route: 048
  11. NASONEX [Concomitant]
     Active Substance: MOMETASONE FUROATE
     Dosage: UNK, DAILY (50 MCG/ACT SUSPENSION: 2 SPRAYS INTO EACH NOSTRIL)
     Route: 045
  12. OMEGA-3-ACID ETHYL ESTER [Concomitant]
     Active Substance: OMEGA-3-ACID ETHYL ESTERS
     Dosage: 1 DF, 2X/DAY
     Route: 048
  13. VITAMIN D [Concomitant]
     Active Substance: CHOLECALCIFEROL
     Dosage: 1000 IU, DAILY
  14. COLACE [Concomitant]
     Active Substance: DOCUSATE SODIUM
     Dosage: 200 MG, DAILY
     Route: 048
  15. EPINEPHRINE. [Concomitant]
     Active Substance: EPINEPHRINE
     Dosage: UNK (0.3 MG/0.3 ML DEVICE: INJECT AS DIRECTED)
  16. ATROVENT [Concomitant]
     Active Substance: IPRATROPIUM BROMIDE
     Dosage: UNK (0.03% SOLUTION: 2 SPRAYS INTO EACH NOSTRIL EVERY 12 HOURS)
     Route: 045
  17. REGULOID [Concomitant]
     Active Substance: PSYLLIUM HUSK
     Dosage: UNK (58.6% POWDER)
     Route: 048
  18. VITAMIN D [Concomitant]
     Active Substance: CHOLECALCIFEROL
     Dosage: 50000 IU, WEEKLY
  19. CALCIUM CITRATE - VITAMIN D [Concomitant]
     Dosage: UNK (CALCIUM: 600 MG, COLECALCIFEROL: 400 MG)
     Route: 048
  20. LEVOTHYROXINE SODIUM. [Concomitant]
     Active Substance: LEVOTHYROXINE SODIUM
     Dosage: 88 UG, DAILY
     Route: 048
  21. ZOLPIDEM [Concomitant]
     Active Substance: ZOLPIDEM\ZOLPIDEM TARTRATE
     Dosage: 12.5 MG, UNK
  22. CLONAZEPAM. [Concomitant]
     Active Substance: CLONAZEPAM
     Indication: ANXIETY
     Dosage: 2 MG, AS NEEDED (NIGHTLY)
     Route: 048

REACTIONS (10)
  - Anosmia [Not Recovered/Not Resolved]
  - Therapeutic response unexpected [Not Recovered/Not Resolved]
  - Hip fracture [Not Recovered/Not Resolved]
  - Femur fracture [Not Recovered/Not Resolved]
  - Fall [Recovered/Resolved]
  - Spinal fracture [Not Recovered/Not Resolved]
  - Rotator cuff syndrome [Not Recovered/Not Resolved]
  - Femur fracture [Unknown]
  - Ageusia [Not Recovered/Not Resolved]
  - Diarrhoea [Recovered/Resolved]

NARRATIVE: CASE EVENT DATE: 2013
